FAERS Safety Report 4623443-X (Version None)
Quarter: 2005Q1

REPORT INFORMATION
  Report Type: 
  Country: None (occurrence: None)
  Receive Date: 20050330
  Receipt Date: 20050316
  Transmission Date: 20050727
  Serious: Yes (Hospitalization)
  Sender: FDA-Public Use
  Company Number: 2005045977

PATIENT
  Age: 52 Year
  Sex: Female

DRUGS (2)
  1. ZYRTEC [Suspect]
     Indication: PRURITUS
     Dosage: 10 MG (10 MG, 1 IN 1 D), ORAL
     Route: 048
     Dates: start: 20030101, end: 20030501
  2. ATARAX [Suspect]
     Indication: PRURITUS
     Dosage: 25 MG (25 MG, 1 IN 1 D), ORAL
     Route: 048
     Dates: start: 20030101, end: 20030501

REACTIONS (3)
  - DRUG ERUPTION [None]
  - ECZEMA [None]
  - SKIN TEST POSITIVE [None]
